FAERS Safety Report 8499891-7 (Version None)
Quarter: 2012Q3

REPORT INFORMATION
  Report Type: 
  Country: None (occurrence: None)
  Receive Date: 20120710
  Receipt Date: 20120703
  Transmission Date: 20120928
  Serious: Yes (Death, Life-Threatening, Hospitalization, Other)
  Sender: FDA-Public Use
  Company Number: PHHY2010JP61672

PATIENT
  Sex: Male
  Weight: 50 kg

DRUGS (4)
  1. POLARAMINE [Concomitant]
     Dosage: UNK UKN, UNK
     Route: 048
     Dates: end: 20100428
  2. RISUMIC [Concomitant]
     Dosage: UNK UKN, UNK
     Route: 048
     Dates: start: 20100308, end: 20100629
  3. ALLEGRA [Concomitant]
     Dosage: UNK UKN, UNK
     Route: 048
     Dates: start: 20100429, end: 20100629
  4. EXJADE [Suspect]
     Indication: IRON OVERLOAD
     Dosage: 1000 MG, DAILY
     Route: 048
     Dates: start: 20100211, end: 20100629

REACTIONS (5)
  - PROCEDURAL HYPOTENSION [None]
  - GASTROINTESTINAL HAEMORRHAGE [None]
  - HYPOALBUMINAEMIA [None]
  - RENAL FAILURE CHRONIC [None]
  - PNEUMONIA [None]
